FAERS Safety Report 21186411 (Version 1)
Quarter: 2022Q3

REPORT INFORMATION
  Report Type: Other
  Country: DE (occurrence: None)
  Receive Date: 20220808
  Receipt Date: 20220808
  Transmission Date: 20221027
  Serious: Yes (Other)
  Sender: FDA-Public Use
  Company Number: DE-Navinta LLC-000289

PATIENT
  Age: 26 Year
  Sex: Female

DRUGS (4)
  1. PENICILLAMINE [Suspect]
     Active Substance: PENICILLAMINE
     Indication: Hepato-lenticular degeneration
     Dosage: 300 MG
  2. PENICILLAMINE [Suspect]
     Active Substance: PENICILLAMINE
     Indication: Hepato-lenticular degeneration
  3. PENICILLAMINE [Suspect]
     Active Substance: PENICILLAMINE
     Indication: Hepato-lenticular degeneration
     Dosage: INCREASED OVER 2 WEEKS UP TO 600 MG
  4. PENICILLAMINE [Suspect]
     Active Substance: PENICILLAMINE
     Indication: Hepato-lenticular degeneration
     Dosage: 1500 MG

REACTIONS (4)
  - Therapy change [Unknown]
  - Hepato-lenticular degeneration [Recovered/Resolved]
  - Condition aggravated [Recovered/Resolved]
  - Exposure during pregnancy [Unknown]
